FAERS Safety Report 24134575 (Version 3)
Quarter: 2024Q3

REPORT INFORMATION
  Report Type: Spontaneous
  Country: CA (occurrence: CA)
  Receive Date: 20240725
  Receipt Date: 20240813
  Transmission Date: 20241016
  Serious: No
  Sender: CELLTRION
  Company Number: CA-CELLTRION INC.-2022CA010534

PATIENT

DRUGS (7)
  1. TRUXIMA [Suspect]
     Active Substance: RITUXIMAB-ABBS
     Indication: Vasculitis
     Dosage: 1000 MG (FREQUENCY DAY 0 AND 14)
     Route: 042
     Dates: start: 20220628
  2. TRUXIMA [Suspect]
     Active Substance: RITUXIMAB-ABBS
     Indication: Granulomatosis with polyangiitis
     Dosage: 1000 MG (FREQUENCY: INFUSION #1; STARTED AT 12.5 ML/HR, TOLERATING WELL SO FAR. 12:00- TRUXIMA RUNNI
     Route: 042
     Dates: start: 20220628, end: 20220628
  3. TRUXIMA [Suspect]
     Active Substance: RITUXIMAB-ABBS
     Dosage: SECOND INFUSION
     Route: 042
     Dates: start: 20220712, end: 20220712
  4. TRUXIMA [Suspect]
     Active Substance: RITUXIMAB-ABBS
     Dosage: 500 MG; INFUSION#3
     Route: 042
     Dates: start: 20230128, end: 20230128
  5. TRUXIMA [Suspect]
     Active Substance: RITUXIMAB-ABBS
     Dosage: UNK
     Dates: start: 20240709
  6. ACETAMINOPHEN [Concomitant]
     Active Substance: ACETAMINOPHEN
     Indication: Premedication
     Dosage: 650 MILLIGRAM
  7. BENADRYL [Concomitant]
     Active Substance: DIPHENHYDRAMINE HYDROCHLORIDE
     Indication: Premedication
     Dosage: 50 MILLIGRAM

REACTIONS (5)
  - Upper respiratory tract congestion [Recovered/Resolved]
  - Throat irritation [Recovered/Resolved]
  - Intentional product use issue [Unknown]
  - Off label use [Unknown]
  - Off label use [Unknown]

NARRATIVE: CASE EVENT DATE: 20220628
